FAERS Safety Report 5983325-8 (Version None)
Quarter: 2008Q4

REPORT INFORMATION
  Report Type: 
  Country: None (occurrence: None)
  Receive Date: 20081208
  Receipt Date: 20080305
  Transmission Date: 20090506
  Serious: No
  Sender: FDA-Public Use
  Company Number: US-AMGEN-KDL267972

PATIENT
  Sex: Female

DRUGS (2)
  1. ENBREL [Suspect]
     Indication: RHEUMATOID ARTHRITIS
     Route: 058
     Dates: start: 20080215
  2. METHOTREXATE [Concomitant]

REACTIONS (7)
  - CHILLS [None]
  - HEADACHE [None]
  - HEPATIC ENZYME INCREASED [None]
  - PAIN [None]
  - PRODUCTIVE COUGH [None]
  - RHINORRHOEA [None]
  - SPUTUM DISCOLOURED [None]
